FAERS Safety Report 8349198-3 (Version None)
Quarter: 2012Q2

REPORT INFORMATION
  Report Type: 
  Country: None (occurrence: None)
  Receive Date: 20120508
  Receipt Date: 20120508
  Transmission Date: 20120825
  Serious: Yes (Hospitalization)
  Sender: FDA-Public Use
  Company Number: None

PATIENT
  Age: 77 Year
  Sex: Female
  Weight: 56.6996 kg

DRUGS (1)
  1. CLINDAMYCIN [Suspect]

REACTIONS (13)
  - VOMITING [None]
  - CONFUSIONAL STATE [None]
  - INCORRECT DOSE ADMINISTERED [None]
  - WHITE BLOOD CELL COUNT DECREASED [None]
  - DROOLING [None]
  - DECREASED APPETITE [None]
  - BLOOD POTASSIUM DECREASED [None]
  - COLITIS ULCERATIVE [None]
  - MALAISE [None]
  - FATIGUE [None]
  - DEHYDRATION [None]
  - WEIGHT DECREASED [None]
  - OROPHARYNGEAL PAIN [None]
